FAERS Safety Report 8359769-6 (Version None)
Quarter: 2012Q2

REPORT INFORMATION
  Report Type: 
  Country: None (occurrence: None)
  Receive Date: 20120515
  Receipt Date: 20120507
  Transmission Date: 20120825
  Serious: Yes (Hospitalization)
  Sender: FDA-Public Use
  Company Number: PHHY2012DE034005

PATIENT
  Sex: Male
  Weight: 66 kg

DRUGS (5)
  1. GABAPENTIN [Concomitant]
     Indication: TREMOR
     Dosage: 1 DF, TID
     Route: 048
     Dates: start: 20110815
  2. IBUPROFEN [Concomitant]
     Indication: BACK PAIN
     Dosage: 1 DF, PRN
  3. SILODOSIN [Concomitant]
     Indication: NEUROGENIC BLADDER
     Dosage: 1 DF, QD
     Route: 048
     Dates: start: 20111115
  4. GILENYA [Suspect]
     Dosage: 0.5 MG, QD
     Route: 048
     Dates: start: 20111219
  5. VESICARE [Concomitant]
     Indication: NEUROGENIC BLADDER
     Dosage: 1 DF, QD
     Route: 048
     Dates: start: 20111115

REACTIONS (6)
  - PNEUMONIA [None]
  - PULMONARY INFARCTION [None]
  - CHEST PAIN [None]
  - PAIN [None]
  - PULMONARY EMBOLISM [None]
  - DYSPNOEA [None]
